FAERS Safety Report 8042022-8 (Version None)
Quarter: 2012Q1

REPORT INFORMATION
  Report Type: 
  Country: None (occurrence: None)
  Receive Date: 20120112
  Receipt Date: 20120104
  Transmission Date: 20120608
  Serious: Yes (Other)
  Sender: FDA-Public Use
  Company Number: US-US-EMD SERONO, INC.-7105019

PATIENT
  Sex: Female
  Weight: 85 kg

DRUGS (4)
  1. ALLEVE [Concomitant]
     Indication: PREMEDICATION
  2. REBIF [Suspect]
     Indication: MULTIPLE SCLEROSIS
     Route: 058
     Dates: start: 20110309
  3. AMANTADINE HCL [Concomitant]
     Indication: FATIGUE
  4. CITALOPRAM HYDROBROMIDE [Concomitant]
     Indication: DEPRESSION

REACTIONS (4)
  - SKIN LESION [None]
  - HERPES ZOSTER [None]
  - INJECTION SITE PAIN [None]
  - HEADACHE [None]
